FAERS Safety Report 9550794 (Version 2)
Quarter: 2014Q2

REPORT INFORMATION
  Report Type: Spontaneous
  Country: US (occurrence: US)
  Receive Date: 20130924
  Receipt Date: 20140402
  Transmission Date: 20141212
  Serious: No
  Sender: FDA-Public Use
  Company Number: US-SANOFI-AVENTIS-2013SA048397

PATIENT
  Age: 60 Year
  Sex: Female

DRUGS (6)
  1. AUBAGIO [Suspect]
     Indication: MULTIPLE SCLEROSIS
     Dosage: TAKEN FROM- 5 MONTHS AGO
     Route: 048
  2. PERCOCET [Concomitant]
     Indication: PAIN
     Dates: start: 2006
  3. HYDROCODONE [Concomitant]
     Indication: PAIN
  4. ALL OTHER THERAPEUTIC PRODUCTS [Concomitant]
     Indication: PAIN
  5. FENTANYL [Concomitant]
  6. HYDROMORPHONE [Concomitant]
     Indication: PAIN

REACTIONS (9)
  - Back pain [Not Recovered/Not Resolved]
  - Depression [Not Recovered/Not Resolved]
  - Headache [Recovering/Resolving]
  - Fatigue [Not Recovered/Not Resolved]
  - Alopecia [Recovering/Resolving]
  - Diarrhoea [Recovering/Resolving]
  - Hypoaesthesia [Not Recovered/Not Resolved]
  - Decreased appetite [Not Recovered/Not Resolved]
  - Abdominal pain upper [Recovering/Resolving]
